FAERS Safety Report 5360586-X (Version None)
Quarter: 2007Q2

REPORT INFORMATION
  Report Type: 
  Country: None (occurrence: None)
  Receive Date: 20070618
  Receipt Date: 20070611
  Transmission Date: 20071010
  Serious: Yes (Death, Other)
  Sender: FDA-Public Use
  Company Number: US-ELI_LILLY_AND_COMPANY-US200706002401

PATIENT
  Age: 46 Year
  Sex: Male

DRUGS (1)
  1. XIGRIS [Suspect]
     Indication: SEPSIS
     Dosage: UNK, UNK
     Dates: start: 20070501, end: 20070601

REACTIONS (3)
  - HODGKIN'S DISEASE [None]
  - RECTAL HAEMORRHAGE [None]
  - RESPIRATORY TRACT HAEMORRHAGE [None]
